FAERS Safety Report 8078458-9 (Version None)
Quarter: 2012Q1

REPORT INFORMATION
  Report Type: 
  Country: None (occurrence: None)
  Receive Date: 20120127
  Receipt Date: 20120127
  Transmission Date: 20120608
  Serious: Yes (Death, Other)
  Sender: FDA-Public Use
  Company Number: None

PATIENT
  Age: 76 Year
  Sex: Female

DRUGS (9)
  1. ALKERAN [Concomitant]
  2. REVLIMID [Suspect]
     Indication: MULTIPLE MYELOMA
     Dosage: 5MG QDX21D ORALLY
     Route: 048
     Dates: start: 20110101, end: 20110401
  3. REVLIMID [Suspect]
     Indication: MULTIPLE MYELOMA
     Dosage: 5MG QDX21D ORALLY
     Route: 048
     Dates: start: 20100201, end: 20100401
  4. TEMAZEPAM [Concomitant]
  5. CITALOPRAM HYDROBROMIDE [Concomitant]
  6. VICODIN [Concomitant]
  7. FAMOTIDINE [Concomitant]
  8. DECADRON [Concomitant]
  9. MEGESTROL ACETATE [Concomitant]

REACTIONS (1)
  - DISEASE PROGRESSION [None]
